FAERS Safety Report 5089370-1 (Version None)
Quarter: 2006Q3

REPORT INFORMATION
  Report Type: 
  Country: None (occurrence: None)
  Receive Date: 20060822
  Receipt Date: 20060808
  Transmission Date: 20061208
  Serious: Yes (Death, Other)
  Sender: FDA-Public Use
  Company Number: CAN-2006-0000352

PATIENT
  Age: 55 Year
  Sex: Female

DRUGS (3)
  1. HYDROMORPH CONTIN (HYDROMORPHONE HYDROCHLORIDE) PROLONGED-RELEASE CAPS [Suspect]
     Indication: DRUG USE FOR UNKNOWN INDICATION
  2. HYDROMORPHONE HYDROCHLORIDE [Suspect]
  3. SERTRALINE [Suspect]

REACTIONS (4)
  - ARRHYTHMIA [None]
  - CORONARY ARTERY DISEASE [None]
  - DRUG TOXICITY [None]
  - OVERDOSE [None]
